FAERS Safety Report 9459385 (Version 1)
Quarter: 2013Q3

REPORT INFORMATION
  Report Type: Spontaneous
  Country: US (occurrence: US)
  Receive Date: 20130815
  Receipt Date: 20130815
  Transmission Date: 20140515
  Serious: No
  Sender: FDA-Public Use
  Company Number: US-BIOGENIDEC-2013BI074612

PATIENT
  Sex: Female

DRUGS (2)
  1. AVONEX [Suspect]
     Indication: MULTIPLE SCLEROSIS
     Route: 030
  2. AVONEX [Suspect]
     Indication: MULTIPLE SCLEROSIS
     Route: 030
     Dates: start: 20100617

REACTIONS (7)
  - Herpes virus infection [Not Recovered/Not Resolved]
  - Injection site scar [Not Recovered/Not Resolved]
  - Injection site haemorrhage [Recovered/Resolved]
  - Pain [Recovered/Resolved]
  - Flushing [Not Recovered/Not Resolved]
  - Hot flush [Not Recovered/Not Resolved]
  - Alopecia [Not Recovered/Not Resolved]
